FAERS Safety Report 6097338-1 (Version None)
Quarter: 2009Q1

REPORT INFORMATION
  Report Type: 
  Country: None (occurrence: None)
  Receive Date: 20090227
  Receipt Date: 20090219
  Transmission Date: 20090719
  Serious: Yes (Other)
  Sender: FDA-Public Use
  Company Number: US-BAYER-200911891NA

PATIENT
  Age: 54 Year
  Sex: Female
  Weight: 78 kg

DRUGS (9)
  1. BETASERON [Suspect]
     Indication: RELAPSING-REMITTING MULTIPLE SCLEROSIS
     Route: 058
  2. BACLOFEN [Concomitant]
     Indication: MUSCLE SPASTICITY
     Dosage: TOTAL DAILY DOSE: 60 MG
     Route: 048
  3. LEVOTHYROXINE SODIUM [Concomitant]
     Indication: THYROID DISORDER
     Dosage: TOTAL DAILY DOSE: 0.25 MG
     Route: 048
  4. OXYBUTYNIN CHLORIDE [Concomitant]
     Indication: MICTURITION URGENCY
     Dosage: TOTAL DAILY DOSE: 10 MG
     Route: 048
  5. OMEPRAZOLE [Concomitant]
     Indication: GASTROOESOPHAGEAL REFLUX DISEASE
     Dosage: TOTAL DAILY DOSE: 20 MG
     Route: 048
  6. WELCHOL [Concomitant]
     Indication: BLOOD CHOLESTEROL INCREASED
     Dosage: TOTAL DAILY DOSE: 1875 MG
     Route: 048
  7. COZAAR [Concomitant]
     Indication: HYPERTENSION
     Dosage: TOTAL DAILY DOSE: 1 DF
     Route: 048
  8. CARDIZEM LA [Concomitant]
     Indication: HYPERTENSION
     Dosage: TOTAL DAILY DOSE: 240 MG
     Route: 048
  9. LEXAPRO [Concomitant]
     Indication: DEPRESSION
     Dosage: TOTAL DAILY DOSE: 10 MG
     Route: 048

REACTIONS (2)
  - PROTEIN TOTAL INCREASED [None]
  - PROTEINURIA [None]
